FAERS Safety Report 21662529 (Version 1)
Quarter: 2022Q4

REPORT INFORMATION
  Report Type: Spontaneous
  Country: US (occurrence: None)
  Receive Date: 20221130
  Receipt Date: 20221130
  Transmission Date: 20230112
  Serious: Yes (Hospitalization, Other)
  Sender: FDA-Public Use
  Company Number: US-Hikma Pharmaceuticals USA Inc.-US-H14001-22-02986

PATIENT
  Sex: Female

DRUGS (3)
  1. PREDNISONE [Suspect]
     Active Substance: PREDNISONE
     Indication: Product used for unknown indication
     Dosage: UNKNOWN
     Route: 065
  2. JAKAFI [Suspect]
     Active Substance: RUXOLITINIB
     Indication: Chronic graft versus host disease
     Dosage: UNKNOWN
     Route: 065
  3. SIROLIMUS [Concomitant]
     Active Substance: SIROLIMUS
     Indication: Product used for unknown indication
     Dosage: UNKNOWN
     Route: 065

REACTIONS (27)
  - Contrast media reaction [Unknown]
  - Graft versus host disease [Not Recovered/Not Resolved]
  - Condition aggravated [Not Recovered/Not Resolved]
  - Rash [Unknown]
  - Musculoskeletal discomfort [Unknown]
  - Erythema [Unknown]
  - Pyrexia [Unknown]
  - Heart rate increased [Unknown]
  - Nausea [Unknown]
  - Vomiting [Unknown]
  - Diarrhoea [Not Recovered/Not Resolved]
  - Immunodeficiency [Unknown]
  - Eating disorder [Unknown]
  - Dehydration [Unknown]
  - Oropharyngeal pain [Unknown]
  - Oral pain [Unknown]
  - Bronchiolitis obliterans syndrome [Unknown]
  - Blood disorder [Unknown]
  - Lacrimation decreased [Unknown]
  - Eye pain [Unknown]
  - Oral mucosal blistering [Not Recovered/Not Resolved]
  - Emotional distress [Unknown]
  - Crying [Unknown]
  - Anger [Unknown]
  - Suicidal ideation [Unknown]
  - Fatigue [Unknown]
  - Full blood count abnormal [Unknown]

NARRATIVE: CASE EVENT DATE: 20221001
